FAERS Safety Report 24327062 (Version 1)
Quarter: 2024Q3

REPORT INFORMATION
  Report Type: Spontaneous
  Country: CN (occurrence: CN)
  Receive Date: 20240917
  Receipt Date: 20240917
  Transmission Date: 20241017
  Serious: Yes (Death)
  Sender: STRIDES
  Company Number: CN-STRIDES ARCOLAB LIMITED-2024SP011786

PATIENT
  Age: 68 Year
  Sex: Male

DRUGS (7)
  1. ETOPOSIDE [Suspect]
     Active Substance: ETOPOSIDE
     Indication: Small cell lung cancer extensive stage
     Dosage: 80 MILLIGRAM/SQ. METER, CYCLICAL (ON DAY 1-3) FOR FOUR CYCLES
     Route: 042
  2. ALBUTEROL [Suspect]
     Active Substance: ALBUTEROL
     Indication: Pneumonia
     Dosage: UNK
     Route: 065
  3. CISPLATIN [Suspect]
     Active Substance: CISPLATIN
     Indication: Small cell lung cancer extensive stage
     Dosage: 75 MILLIGRAM/SQ. METER, CYCLICAL FOR FOUR CYCLES
     Route: 042
  4. DURVALUMAB [Suspect]
     Active Substance: DURVALUMAB
     Indication: Small cell lung cancer extensive stage
     Dosage: 1500 MILLIGRAM, CYCLICAL EVERY THREE WEEKS FOR FOUR CYCLES
     Route: 042
  5. DURVALUMAB [Suspect]
     Active Substance: DURVALUMAB
     Dosage: 1500 MILLIGRAM, CYCLICAL EVERY FOUR WEEKS FOR FOUR CYCLES
     Route: 042
  6. CEFTIZOXIME [Concomitant]
     Active Substance: CEFTIZOXIME
     Indication: Pneumonia
     Dosage: 1 GRAM, EVERY 12 HRS (1 G/ Q12H/9D)
     Route: 042
  7. METHYLPREDNISOLONE [Concomitant]
     Active Substance: METHYLPREDNISOLONE
     Indication: Pneumonia
     Dosage: 40 MILLIGRAM, QD (40 MG/QD/5D)
     Route: 042

REACTIONS (3)
  - Therapy partial responder [Fatal]
  - Malignant neoplasm progression [Fatal]
  - Off label use [Unknown]
